FAERS Safety Report 6221616-6 (Version None)
Quarter: 2009Q2

REPORT INFORMATION
  Report Type: 
  Country: None (occurrence: None)
  Receive Date: 20090608
  Receipt Date: 20090527
  Transmission Date: 20091009
  Serious: Yes (Death, Hospitalization)
  Sender: FDA-Public Use
  Company Number: GR-WYE-H09554709

PATIENT
  Age: 39 Year

DRUGS (2)
  1. TYGACIL [Suspect]
     Indication: ACINETOBACTER INFECTION
     Dosage: 100 MG LOADING DOSE FOLLOWED BY 50 MG EVERY 12 HOURS INTRAVENOUS
     Route: 042
  2. TYGACIL [Suspect]
     Indication: PNEUMONIA
     Dosage: 100 MG LOADING DOSE FOLLOWED BY 50 MG EVERY 12 HOURS INTRAVENOUS
     Route: 042

REACTIONS (5)
  - ACINETOBACTER BACTERAEMIA [None]
  - PATHOGEN RESISTANCE [None]
  - PROTEUS INFECTION [None]
  - SEPTIC SHOCK [None]
  - SUPERINFECTION [None]
